FAERS Safety Report 8078443-7 (Version None)
Quarter: 2012Q1

REPORT INFORMATION
  Report Type: 
  Country: None (occurrence: None)
  Receive Date: 20120127
  Receipt Date: 20120127
  Transmission Date: 20120608
  Serious: Yes (Death)
  Sender: FDA-Public Use
  Company Number: None

PATIENT
  Age: 76 Year
  Sex: Female

DRUGS (9)
  1. AREDIA [Concomitant]
  2. ATIVAN [Concomitant]
  3. ATENOLOL [Concomitant]
  4. QVAR 40 [Concomitant]
  5. CIPROFLOXACIN [Concomitant]
  6. AUGMENTIN '125' [Concomitant]
  7. REVLIMID [Suspect]
     Indication: MULTIPLE MYELOMA
     Dosage: 5MG QD21D ORALLY
     Route: 048
     Dates: start: 20110601
  8. REVLIMID [Suspect]
     Indication: MULTIPLE MYELOMA
     Dosage: 5MG QD21D ORALLY
     Route: 048
     Dates: start: 20090801, end: 20101101
  9. DECADRON [Concomitant]

REACTIONS (4)
  - FATIGUE [None]
  - NEUTROPENIA [None]
  - MULTIPLE MYELOMA [None]
  - NEOPLASM PROGRESSION [None]
